FAERS Safety Report 9930244 (Version 1)
Quarter: 2014Q1

REPORT INFORMATION
  Report Type: Spontaneous
  Country: US (occurrence: US)
  Receive Date: 20140227
  Receipt Date: 20140227
  Transmission Date: 20141002
  Serious: No
  Sender: FDA-Public Use
  Company Number: US-AMGEN-USASP2013077088

PATIENT
  Age: 62 Year
  Sex: Female
  Weight: 56.69 kg

DRUGS (16)
  1. ENBREL [Suspect]
     Indication: PRODUCT USED FOR UNKNOWN INDICATION
     Dosage: 50 MG, QWK
     Route: 058
  2. PREDNISONE [Concomitant]
     Dosage: 1 MG, UNK
  3. LEFLUNOMIDE [Concomitant]
     Dosage: 10 MG, UNK
  4. OMEPRAZOLE [Concomitant]
     Dosage: 20 MG, UNK
  5. METOCLOPRAM [Concomitant]
     Dosage: 10 MG, UNK
  6. LYRICA [Concomitant]
     Dosage: 100 MG, UNK
  7. VITAMIN D                          /00107901/ [Concomitant]
     Dosage: 1000 UNIT, UNK
  8. OXYCONTIN [Concomitant]
     Dosage: 10 MG, UNK
  9. OXYCODONE [Concomitant]
     Dosage: 15 MG, UNK
  10. ATENOLOL [Concomitant]
     Dosage: 100 MG, UNK
  11. TYLENOL                            /00020001/ [Concomitant]
     Dosage: 500 MG, UNK
  12. OMEGA-3                            /01866101/ [Concomitant]
     Dosage: 1000 MG, UNK
  13. AMBIEN [Concomitant]
     Dosage: 5 MG, UNK
  14. CALCIUM [Concomitant]
     Dosage: 500 UNK, UNK
  15. MAGNESSIUM CARBONATE [Concomitant]
     Dosage: 300 MG, UNK
  16. STOOL SOFTENER [Concomitant]
     Dosage: 100-30

REACTIONS (1)
  - Drug effect decreased [Unknown]
